FAERS Safety Report 16490066 (Version 6)
Quarter: 2020Q2

REPORT INFORMATION
  Report Type: Report from Study
  Country: CA (occurrence: CA)
  Receive Date: 20190628
  Receipt Date: 20200402
  Transmission Date: 20200713
  Serious: Yes (Other)
  Sender: FDA-Public Use
  Company Number: CA-REGENERON PHARMACEUTICALS, INC.-2019-38816

PATIENT

DRUGS (1)
  1. EYLEA [Suspect]
     Active Substance: AFLIBERCEPT
     Indication: DIABETIC RETINAL OEDEMA
     Dosage: UNK
     Route: 031
     Dates: start: 20160726

REACTIONS (7)
  - Injection site pain [Not Recovered/Not Resolved]
  - Eye injury [Unknown]
  - Eye haemorrhage [Not Recovered/Not Resolved]
  - Eye swelling [Unknown]
  - Cataract operation [Unknown]
  - Blindness [Not Recovered/Not Resolved]
  - Eye haemorrhage [Unknown]

NARRATIVE: CASE EVENT DATE: 2018
